FAERS Safety Report 10240220 (Version 1)
Quarter: 2014Q2

REPORT INFORMATION
  Report Type: Spontaneous
  Country: US (occurrence: US)
  Receive Date: 20140617
  Receipt Date: 20140617
  Transmission Date: 20141212
  Serious: Yes (Other)
  Sender: FDA-Public Use
  Company Number: PHHY2014US071355

PATIENT
  Age: 46 Year
  Sex: Female

DRUGS (3)
  1. CICLOSPORIN [Suspect]
  2. AZATHIOPRINE [Suspect]
  3. PREDNISONE [Suspect]

REACTIONS (1)
  - Squamous cell carcinoma [Unknown]
